FAERS Safety Report 17128306 (Version 1)
Quarter: 2019Q4

REPORT INFORMATION
  Report Type: Spontaneous
  Country: GB (occurrence: GB)
  Receive Date: 20191209
  Receipt Date: 20191209
  Transmission Date: 20200122
  Serious: Yes (Other)
  Sender: FDA-Public Use
  Company Number: GB-GILEAD-2019-0441191

PATIENT
  Sex: Male

DRUGS (1)
  1. HARVONI [Suspect]
     Active Substance: LEDIPASVIR\SOFOSBUVIR
     Indication: HEPATITIS C
     Route: 065

REACTIONS (8)
  - Hepatitis C [Unknown]
  - Drug ineffective [Unknown]
  - Hepatic neoplasm [Not Recovered/Not Resolved]
  - Aneurysm ruptured [Unknown]
  - Aneurysm [Unknown]
  - Neoplasm malignant [Unknown]
  - Neoplasm progression [Unknown]
  - Metastases to abdominal cavity [Unknown]
